FAERS Safety Report 5599735-7 (Version None)
Quarter: 2008Q1

REPORT INFORMATION
  Report Type: 
  Country: None (occurrence: None)
  Receive Date: 20080118
  Receipt Date: 20080118
  Transmission Date: 20080703
  Serious: Yes (Hospitalization)
  Sender: FDA-Public Use
  Company Number: None

PATIENT
  Age: 47 Year
  Sex: Female

DRUGS (6)
  1. LAMOTRIGINE [Suspect]
     Dosage: 25-50 MG PO QD ~ 2 WKS PTA
     Route: 048
  2. ADVAIR DISKUS 100/50 [Concomitant]
  3. ALBUTEROL [Concomitant]
  4. CLONAPINE [Concomitant]
  5. DAPSONE [Concomitant]
  6. MEGACE [Concomitant]

REACTIONS (5)
  - DYSPNOEA [None]
  - PYREXIA [None]
  - RASH MACULO-PAPULAR [None]
  - RASH PRURITIC [None]
  - THROAT TIGHTNESS [None]
